FAERS Safety Report 22627458 (Version 1)
Quarter: 2023Q2

REPORT INFORMATION
  Report Type: Spontaneous
  Country: FR (occurrence: FR)
  Receive Date: 20230622
  Receipt Date: 20230622
  Transmission Date: 20230721
  Serious: Yes (Hospitalization)
  Sender: FDA-Public Use
  Company Number: None

PATIENT
  Age: 29 Year
  Sex: Male
  Weight: 65 kg

DRUGS (1)
  1. LYSODREN [Suspect]
     Active Substance: MITOTANE
     Indication: Adrenal gland cancer metastatic
     Route: 048
     Dates: start: 202301

REACTIONS (1)
  - Myoclonus [Recovered/Resolved]

NARRATIVE: CASE EVENT DATE: 20230501
